FAERS Safety Report 6057634-0 (Version None)
Quarter: 2009Q1

REPORT INFORMATION
  Report Type: 
  Country: None (occurrence: None)
  Receive Date: 20090129
  Receipt Date: 20080826
  Transmission Date: 20090719
  Serious: No
  Sender: FDA-Public Use
  Company Number: US-BAUSCH-2008BL003719

PATIENT
  Age: 3 Month
  Sex: Male

DRUGS (2)
  1. BACITRACIN OPHTHALMIC OINTMENT [Suspect]
     Indication: CONJUNCTIVITIS
     Route: 047
     Dates: start: 20080826, end: 20080826
  2. IBUPROFEN [Concomitant]
     Indication: PAIN
     Dates: start: 20080824

REACTIONS (1)
  - LACRIMAL DISORDER [None]
